FAERS Safety Report 21568069 (Version 2)
Quarter: 2022Q4

REPORT INFORMATION
  Report Type: Spontaneous
  Country: US (occurrence: US)
  Receive Date: 20221108
  Receipt Date: 20221219
  Transmission Date: 20230112
  Serious: Yes (Hospitalization, Other)
  Sender: FDA-Public Use
  Company Number: US-PROCTER_AND_GAMBLE-PH22010762

PATIENT
  Age: 19 Year
  Sex: Male

DRUGS (2)
  1. DIPHENHYDRAMINE HYDROCHLORIDE [Suspect]
     Active Substance: DIPHENHYDRAMINE HYDROCHLORIDE
     Dosage: INGESTING 100 TABS OF DIPHENHYDRAMINE
     Route: 048
  2. ETHYLENE GLYCOL [Suspect]
     Active Substance: ETHYLENE GLYCOL
     Dosage: UNK
     Route: 048

REACTIONS (4)
  - Suicide attempt [Unknown]
  - Metabolic acidosis [Recovered/Resolved]
  - Somnolence [Recovered/Resolved]
  - Overdose [Unknown]
